FAERS Safety Report 9737742 (Version 1)
Quarter: 2013Q4

REPORT INFORMATION
  Report Type: Spontaneous
  Country: US (occurrence: US)
  Receive Date: 20131208
  Receipt Date: 20131208
  Transmission Date: 20140711
  Serious: No
  Sender: FDA-Public Use
  Company Number: US-SANOFI-AVENTIS-2013SA094193

PATIENT
  Sex: 0

DRUGS (1)
  1. RENVELA [Suspect]
     Indication: PRODUCT USED FOR UNKNOWN INDICATION
     Dosage: RENEVLEA 800 MG TABLETS- 3 TABLETS ORAL TID WID MEALS
     Route: 048

REACTIONS (1)
  - Constipation [Recovered/Resolved]
